FAERS Safety Report 11512484 (Version 6)
Quarter: 2016Q1

REPORT INFORMATION
  Report Type: Report from Study
  Country: TW (occurrence: TW)
  Receive Date: 20150916
  Receipt Date: 20160224
  Transmission Date: 20160525
  Serious: No
  Sender: FDA-Public Use
  Company Number: PHHY2015TW110221

PATIENT
  Age: 49 Year
  Sex: Male

DRUGS (18)
  1. FLUOROMETHOLONE. [Concomitant]
     Active Substance: FLUOROMETHOLONE
     Indication: PRODUCT USED FOR UNKNOWN INDICATION
     Dosage: UNK
     Route: 065
     Dates: start: 20150330, end: 20150422
  2. ULSAFE [Concomitant]
     Indication: ABDOMINAL PAIN UPPER
     Dosage: 150 MG, UNK
     Route: 048
     Dates: start: 20140926, end: 20141021
  3. TASIGNA [Suspect]
     Active Substance: NILOTINIB
     Indication: CHRONIC MYELOID LEUKAEMIA
     Dosage: 600 OT, UNK
     Route: 048
     Dates: start: 20140903, end: 20140913
  4. AMARYL [Concomitant]
     Active Substance: GLIMEPIRIDE
     Indication: DIABETES MELLITUS
     Dosage: 2 MG, UNK
     Route: 048
     Dates: start: 20140815
  5. TASIGNA [Suspect]
     Active Substance: NILOTINIB
     Dosage: 450 OT, UNK
     Route: 048
     Dates: start: 20141126, end: 20150120
  6. PASCA [Concomitant]
     Indication: PRODUCT USED FOR UNKNOWN INDICATION
     Dosage: UNK
     Route: 061
     Dates: start: 20141126, end: 20150422
  7. SPIROTONE [Concomitant]
     Indication: ACUTE PULMONARY OEDEMA
     Dosage: 25 MG, UNK
     Route: 048
     Dates: start: 20140926
  8. TASIGNA [Suspect]
     Active Substance: NILOTINIB
     Dosage: 450 OT, UNK
     Route: 048
     Dates: start: 20141112, end: 20141113
  9. TASIGNA [Suspect]
     Active Substance: NILOTINIB
     Dosage: 600 OT, UNK
     Route: 048
     Dates: start: 20150121
  10. ROSIS [Concomitant]
     Active Substance: FUROSEMIDE
     Indication: ACUTE PULMONARY OEDEMA
     Dosage: 40 MG, UNK
     Route: 048
     Dates: start: 20140926, end: 20150120
  11. TASIGNA [Suspect]
     Active Substance: NILOTINIB
     Dosage: 300 OT, UNK
     Route: 048
     Dates: start: 20141015, end: 20141111
  12. NEOMYCIN SULFATE. [Concomitant]
     Active Substance: NEOMYCIN SULFATE
     Indication: PRODUCT USED FOR UNKNOWN INDICATION
     Dosage: UNK
     Route: 061
     Dates: start: 20150121, end: 20150124
  13. BOKEY [Concomitant]
     Indication: CARDIAC FAILURE CONGESTIVE
     Dosage: 100 MG, UNK
     Route: 048
     Dates: start: 20140926
  14. LIPITOR [Concomitant]
     Active Substance: ATORVASTATIN CALCIUM
     Indication: HYPERLIPIDAEMIA
     Dosage: 10 MG, UNK
     Route: 048
     Dates: start: 20140926
  15. PLAVIX [Concomitant]
     Active Substance: CLOPIDOGREL BISULFATE
     Indication: CARDIAC FAILURE CONGESTIVE
     Dosage: 75 MG, UNK
     Route: 048
     Dates: start: 20140926
  16. TASIGNA [Suspect]
     Active Substance: NILOTINIB
     Dosage: 150 OT, UNK
     Route: 048
     Dates: start: 20141119, end: 20141125
  17. DIOVAN [Concomitant]
     Active Substance: VALSARTAN
     Indication: CARDIAC FAILURE CONGESTIVE
     Dosage: 80 MG, UNK
     Route: 048
     Dates: start: 20140926
  18. GLUCOPHAGE [Concomitant]
     Active Substance: METFORMIN HYDROCHLORIDE
     Indication: DIABETES MELLITUS
     Dosage: 500 MG, UNK
     Route: 048
     Dates: start: 20140815

REACTIONS (2)
  - Nasopharyngitis [Recovered/Resolved]
  - Coronary artery disease [Recovering/Resolving]

NARRATIVE: CASE EVENT DATE: 20141015
